FAERS Safety Report 14684826 (Version 1)
Quarter: 2018Q1

REPORT INFORMATION
  Report Type: Spontaneous
  Country: US (occurrence: US)
  Receive Date: 20180327
  Receipt Date: 20180327
  Transmission Date: 20180509
  Serious: No
  Sender: FDA-Public Use
  Company Number: US-CLOVIS ONCOLOGY-CLO-2018-000111

PATIENT
  Sex: Female

DRUGS (1)
  1. RUBRACA [Suspect]
     Active Substance: RUCAPARIB CAMSYLATE
     Indication: OVARIAN CANCER
     Dosage: 600 MG, BID
     Route: 048
     Dates: start: 20170427

REACTIONS (17)
  - Weight loss poor [Unknown]
  - Neutrophil count increased [Unknown]
  - Headache [Not Recovered/Not Resolved]
  - Nausea [Not Recovered/Not Resolved]
  - Hypoaesthesia [Unknown]
  - Anaemia [Not Recovered/Not Resolved]
  - Genital lesion [Unknown]
  - Arthralgia [Unknown]
  - Paraesthesia [Unknown]
  - Blood glucose increased [Unknown]
  - White blood cell count decreased [Not Recovered/Not Resolved]
  - Fatigue [Not Recovered/Not Resolved]
  - Oedema peripheral [Not Recovered/Not Resolved]
  - Insomnia [Unknown]
  - Depression [Unknown]
  - Blood potassium decreased [Recovered/Resolved]
  - Alanine aminotransferase increased [Not Recovered/Not Resolved]
